FAERS Safety Report 23540153 (Version 1)
Quarter: 2024Q1

REPORT INFORMATION
  Report Type: Other
  Country: US (occurrence: None)
  Receive Date: 20240219
  Receipt Date: 20240219
  Transmission Date: 20240410
  Serious: No
  Sender: FDA-Public Use
  Company Number: US-ROCHE-3509630

PATIENT
  Age: 57 Year
  Sex: Female
  Weight: 113.5 kg

DRUGS (2)
  1. OCREVUS [Suspect]
     Active Substance: OCRELIZUMAB
     Indication: Multiple sclerosis
     Route: 042
  2. TALICIA [Concomitant]
     Active Substance: AMOXICILLIN\OMEPRAZOLE MAGNESIUM\RIFABUTIN
     Dosage: PATIENT TAKES 4 CAPSULES 3 TIMES DAILY, THE DOSAGE IS 12-25-12.5 MG?FOR EACH CAPSULE

REACTIONS (5)
  - Abdominal distension [Unknown]
  - Vulvovaginal discomfort [Unknown]
  - Helicobacter test positive [Unknown]
  - Paranasal sinus hypersecretion [Not Recovered/Not Resolved]
  - Nasal congestion [Not Recovered/Not Resolved]

NARRATIVE: CASE EVENT DATE: 20231101
